FAERS Safety Report 10682497 (Version 2)
Quarter: 2015Q1

REPORT INFORMATION
  Report Type: Spontaneous
  Country: JP (occurrence: JP)
  Receive Date: 20141230
  Receipt Date: 20150119
  Transmission Date: 20150720
  Serious: Yes (Death, Hospitalization)
  Sender: FDA-Public Use
  Company Number: JP-BAYER-2014-189839

PATIENT
  Age: 69 Year
  Sex: Male

DRUGS (10)
  1. STIVARGA [Suspect]
     Active Substance: REGORAFENIB
     Indication: COLORECTAL CANCER
     Dosage: 160 MG, QD
     Route: 048
     Dates: start: 20141017, end: 201410
  2. STIVARGA [Suspect]
     Active Substance: REGORAFENIB
     Indication: COLORECTAL CANCER
     Dosage: 160 MG, QD (3 WEEKS ON AND 1 WEEK OFF)
     Route: 048
     Dates: start: 20141031, end: 20141102
  3. LONBANIN GALEN [Concomitant]
     Indication: COLORECTAL CANCER
     Dosage: DAILY DOSE 2 MG
     Route: 048
     Dates: start: 20141027, end: 20141215
  4. PRAMIEL [Concomitant]
     Indication: COLORECTAL CANCER
     Dosage: DAILY DOSE 10 MG
     Route: 048
     Dates: start: 20141009, end: 20141215
  5. BESOFTEN [Concomitant]
     Active Substance: SODIUM ALGINATE
     Indication: DRUG TOXICITY PROPHYLAXIS
     Dosage: UNK
     Route: 061
     Dates: start: 20141003, end: 20141121
  6. LANSOPRAZOLE. [Concomitant]
     Active Substance: LANSOPRAZOLE
     Indication: COLORECTAL CANCER
     Dosage: DAILY DOSE 15 MG
     Route: 048
     Dates: start: 20141027, end: 20141215
  7. PETROLATUM. [Concomitant]
     Active Substance: PETROLATUM
     Dosage: UNK
     Route: 061
     Dates: start: 20141017, end: 20141031
  8. CELECOXIB. [Concomitant]
     Active Substance: CELECOXIB
     Indication: COLORECTAL CANCER
     Dosage: DAILY DOSE 200 MG
     Route: 048
     Dates: start: 20141027, end: 20141215
  9. STIVARGA [Suspect]
     Active Substance: REGORAFENIB
     Indication: COLORECTAL CANCER
     Dosage: 80 MG, QD
     Route: 048
     Dates: start: 201412, end: 201412
  10. STIVARGA [Suspect]
     Active Substance: REGORAFENIB
     Indication: COLORECTAL CANCER
     Dosage: 120 MG, QD (3 WEEKS ON AND 1 WEEK OFF)
     Route: 048
     Dates: start: 20141111, end: 20141121

REACTIONS (3)
  - General physical health deterioration [Recovered/Resolved]
  - Colorectal cancer [Fatal]
  - Hepatic function abnormal [Recovering/Resolving]

NARRATIVE: CASE EVENT DATE: 20141020
